FAERS Safety Report 26154031 (Version 1)
Quarter: 2025Q4

REPORT INFORMATION
  Report Type: Report from Study
  Country: US (occurrence: US)
  Receive Date: 20251215
  Receipt Date: 20251215
  Transmission Date: 20260117
  Serious: Yes (Other)
  Sender: JOHNSON AND JOHNSON
  Company Number: US-JNJFOC-20251209114

PATIENT
  Age: 6 Decade
  Sex: Female

DRUGS (2)
  1. SPRAVATO [Suspect]
     Active Substance: ESKETAMINE
     Indication: Depression
     Dosage: ^56 MG, 2 TOTAL DOSES^
     Route: 045
     Dates: start: 20250703, end: 20250705
  2. SPRAVATO [Suspect]
     Active Substance: ESKETAMINE
     Dosage: ^84 MG, 16 TOTAL DOSES^
     Route: 045
     Dates: start: 20250707, end: 20251117

REACTIONS (7)
  - Blindness transient [Recovered/Resolved]
  - Reading disorder [Unknown]
  - Anxiety [Recovering/Resolving]
  - Illusion [Unknown]
  - Glossodynia [Not Recovered/Not Resolved]
  - Oropharyngeal pain [Not Recovered/Not Resolved]
  - Therapeutic response unexpected [Unknown]

NARRATIVE: CASE EVENT DATE: 20250101
